FAERS Safety Report 24206144 (Version 3)
Quarter: 2025Q3

REPORT INFORMATION
  Report Type: Report from Study
  Country: US (occurrence: US)
  Receive Date: 20240813
  Receipt Date: 20250803
  Transmission Date: 20251021
  Serious: Yes (Other)
  Sender: ALEXION PHARMACEUTICALS
  Company Number: 2024A182003

PATIENT
  Sex: Female

DRUGS (6)
  1. BREZTRI [Suspect]
     Active Substance: BUDESONIDE\FORMOTEROL\GLYCOPYRROLATE
  2. BENRALIZUMAB [Suspect]
     Active Substance: BENRALIZUMAB
     Indication: Asthma
  3. AMOXICILLIN [Concomitant]
     Active Substance: AMOXICILLIN
  4. FUROSEMIDE [Concomitant]
     Active Substance: FUROSEMIDE
  5. PROBIOTICS NOS [Concomitant]
     Active Substance: PROBIOTICS NOS
  6. VITAMIN D [Concomitant]
     Active Substance: VITAMIN D NOS

REACTIONS (4)
  - Tooth fracture [Not Recovered/Not Resolved]
  - Asthma [Unknown]
  - Urticaria [Not Recovered/Not Resolved]
  - Incorrect dose administered [Not Recovered/Not Resolved]
